FAERS Safety Report 7868949-5 (Version None)
Quarter: 2011Q4

REPORT INFORMATION
  Report Type: 
  Country: None (occurrence: None)
  Receive Date: 20111028
  Receipt Date: 20101222
  Transmission Date: 20120403
  Serious: No
  Sender: FDA-Public Use
  Company Number: US-AMGEN-USASP2010001356

PATIENT
  Age: 70 Year
  Sex: Male

DRUGS (2)
  1. ENBREL [Suspect]
     Indication: RHEUMATOID ARTHRITIS
     Dosage: 50 MG, QWK
     Dates: start: 20090708
  2. ENBREL [Suspect]
     Dosage: 50 MG, QWK
     Dates: start: 20090201

REACTIONS (6)
  - DECREASED APPETITE [None]
  - OEDEMA PERIPHERAL [None]
  - PAIN [None]
  - TENDON DISORDER [None]
  - LIGAMENT SPRAIN [None]
  - RHEUMATOID ARTHRITIS [None]
